FAERS Safety Report 10390239 (Version 2)
Quarter: 2014Q4

REPORT INFORMATION
  Report Type: Spontaneous
  Country: US (occurrence: None)
  Receive Date: 20140814
  Receipt Date: 20141027
  Transmission Date: 20150528
  Serious: Yes (Other)
  Sender: FDA-Public Use
  Company Number: 2014-US-009815

PATIENT
  Age: 24 Year
  Sex: Female

DRUGS (2)
  1. XYREM [Suspect]
     Active Substance: SODIUM OXYBATE
     Indication: CATAPLEXY
     Dosage: APPROXIMATELY 6 GM, ORAL
     Route: 048
     Dates: start: 20140801, end: 201408
  2. XYREM [Suspect]
     Active Substance: SODIUM OXYBATE
     Indication: NARCOLEPSY
     Dosage: APPROXIMATELY 6 GM, ORAL
     Route: 048
     Dates: start: 20140801, end: 201408

REACTIONS (4)
  - Accidental overdose [None]
  - Swollen tongue [None]
  - Sleep apnoea syndrome [None]
  - Unresponsive to stimuli [None]

NARRATIVE: CASE EVENT DATE: 20140801
